FAERS Safety Report 8154005-8 (Version None)
Quarter: 2012Q1

REPORT INFORMATION
  Report Type: 
  Country: None (occurrence: None)
  Receive Date: 20120221
  Receipt Date: 20120221
  Transmission Date: 20120608
  Serious: Yes (Other)
  Sender: FDA-Public Use
  Company Number: None

PATIENT
  Age: 27 Year
  Sex: Male

DRUGS (2)
  1. CIPROFLOXACIN HCL [Suspect]
     Indication: RESPIRATORY TRACT INFECTION
     Route: 048
     Dates: start: 20120215, end: 20120217
  2. METHYLPREDNISOLONE [Concomitant]
     Route: 048
     Dates: start: 20120215, end: 20120221

REACTIONS (1)
  - ARTHRALGIA [None]
